FAERS Safety Report 7320612-5 (Version None)
Quarter: 2011Q1

REPORT INFORMATION
  Report Type: 
  Country: None (occurrence: None)
  Receive Date: 20110228
  Receipt Date: 20110216
  Transmission Date: 20110831
  Serious: Yes (Other)
  Sender: FDA-Public Use
  Company Number: US-ROCHE-707177

PATIENT
  Sex: Male
  Weight: 68 kg

DRUGS (2)
  1. ACCUTANE [Suspect]
     Indication: ACNE
     Dosage: DOSE: 20MG AND 40MG
     Route: 065
     Dates: start: 19950620, end: 19951003
  2. ACCUTANE [Suspect]
     Route: 065
     Dates: start: 19951003, end: 19951201

REACTIONS (4)
  - COLITIS ULCERATIVE [None]
  - CROHN'S DISEASE [None]
  - OBSESSIVE-COMPULSIVE DISORDER [None]
  - INFLAMMATORY BOWEL DISEASE [None]
